FAERS Safety Report 12118880 (Version 1)
Quarter: 2016Q1

REPORT INFORMATION
  Report Type: Spontaneous
  Country: FR (occurrence: FR)
  Receive Date: 20160226
  Receipt Date: 20160226
  Transmission Date: 20160526
  Serious: Yes (Hospitalization)
  Sender: FDA-Public Use
  Company Number: FR-JNJFOC-20160215414

PATIENT
  Age: 14 Year
  Sex: Female

DRUGS (9)
  1. TEMESTA [Concomitant]
     Active Substance: LORAZEPAM
     Route: 065
  2. HYDROCORTISONE. [Concomitant]
     Active Substance: HYDROCORTISONE
     Route: 065
  3. LAROXYL [Concomitant]
     Active Substance: AMITRIPTYLINE
     Route: 065
  4. STELARA [Suspect]
     Active Substance: USTEKINUMAB
     Indication: CROHN^S DISEASE
     Route: 058
     Dates: start: 201508
  5. SKENAN [Concomitant]
     Active Substance: MORPHINE SULFATE
     Route: 065
  6. ACTISKENAN [Concomitant]
     Active Substance: MORPHINE SULFATE
     Route: 065
  7. STELARA [Suspect]
     Active Substance: USTEKINUMAB
     Indication: CROHN^S DISEASE
     Route: 058
     Dates: start: 201601
  8. URSOFALK [Concomitant]
     Active Substance: URSODIOL
     Route: 065
  9. MOPRAL [Concomitant]
     Active Substance: OMEPRAZOLE SODIUM
     Route: 065

REACTIONS (6)
  - Asthenia [Unknown]
  - Mydriasis [Unknown]
  - Paraesthesia [Recovered/Resolved]
  - Headache [Recovered/Resolved]
  - Off label use [Unknown]
  - Product use issue [Unknown]

NARRATIVE: CASE EVENT DATE: 201508
